FAERS Safety Report 17890610 (Version 1)
Quarter: 2020Q2

REPORT INFORMATION
  Report Type: Spontaneous
  Country: KR (occurrence: KR)
  Receive Date: 20200612
  Receipt Date: 20200612
  Transmission Date: 20200714
  Serious: Yes (Other)
  Sender: FDA-Public Use
  Company Number: KR-BAYER-2020-112532

PATIENT
  Age: 44 Year
  Sex: Female

DRUGS (3)
  1. ULTRAVIST [Suspect]
     Active Substance: IOPROMIDE
     Indication: ANGIOGRAM
     Dosage: 40 MG, ONCE
  2. CLOPIDOGREL [Suspect]
     Active Substance: CLOPIDOGREL BISULFATE
  3. ASPIRIN. [Suspect]
     Active Substance: ASPIRIN

REACTIONS (5)
  - Cerebral haemorrhage [None]
  - Hemiparesis [None]
  - Labelled drug-drug interaction medication error [None]
  - Confusional state [None]
  - Contrast encephalopathy [None]
